FAERS Safety Report 25985022 (Version 1)
Quarter: 2025Q4

REPORT INFORMATION
  Report Type: Spontaneous
  Country: US (occurrence: US)
  Receive Date: 20251031
  Receipt Date: 20251031
  Transmission Date: 20260117
  Serious: No
  Sender: ABBVIE
  Company Number: US-ABBVIE-6520218

PATIENT
  Age: 24 Year
  Sex: Male

DRUGS (3)
  1. UPADACITINIB [Suspect]
     Active Substance: UPADACITINIB
     Indication: Crohn^s disease
     Dosage: LAST ADMIN DATE: 2025
     Route: 048
     Dates: start: 20250622
  2. UPADACITINIB [Suspect]
     Active Substance: UPADACITINIB
     Indication: Crohn^s disease
     Dosage: LAST ADMIN DATE: 2025, FORM STRENGTH: 30 MG
     Route: 048
     Dates: start: 2025
  3. UPADACITINIB [Suspect]
     Active Substance: UPADACITINIB
     Indication: Crohn^s disease
     Dosage: FORM STRENGTH: 15 MG, DOSE REDUCED.
     Route: 048
     Dates: start: 20250915

REACTIONS (1)
  - Blood bilirubin abnormal [Recovered/Resolved]

NARRATIVE: CASE EVENT DATE: 20250623
